FAERS Safety Report 7729143-1 (Version None)
Quarter: 2011Q3

REPORT INFORMATION
  Report Type: 
  Country: None (occurrence: None)
  Receive Date: 20110906
  Receipt Date: 20110830
  Transmission Date: 20111222
  Serious: No
  Sender: FDA-Public Use
  Company Number: US-PFIZER INC-2011204481

PATIENT
  Sex: Female

DRUGS (4)
  1. PRISTIQ [Suspect]
     Dosage: 50MG, UNK
  2. FISH OIL [Suspect]
     Dosage: UNK
  3. VITAMIN K TAB [Concomitant]
     Indication: CAPILLARY DISORDER
     Dosage: UNK
  4. BENICAR [Suspect]
     Dosage: UNK

REACTIONS (1)
  - CONTUSION [None]
